FAERS Safety Report 14875567 (Version 1)
Quarter: 2018Q2

REPORT INFORMATION
  Report Type: Spontaneous
  Country: US (occurrence: US)
  Receive Date: 20180510
  Receipt Date: 20180510
  Transmission Date: 20180711
  Serious: Yes (Other)
  Sender: FDA-Public Use
  Company Number: US-PFIZER INC-2018189862

PATIENT
  Age: 53 Year
  Sex: Female
  Weight: 77.98 kg

DRUGS (2)
  1. LYRICA [Suspect]
     Active Substance: PREGABALIN
     Indication: PAIN
  2. LYRICA [Suspect]
     Active Substance: PREGABALIN
     Indication: SPINAL CORD INJURY
     Dosage: 75 MG, 3X/DAY (75 MG CAPSULE ORALLY EVERY DAY EVERY 8 HOURS)
     Route: 048

REACTIONS (3)
  - Peripheral swelling [Unknown]
  - Weight decreased [Unknown]
  - Weight increased [Unknown]
